FAERS Safety Report 26015978 (Version 1)
Quarter: 2025Q4

REPORT INFORMATION
  Report Type: Spontaneous
  Country: US (occurrence: US)
  Receive Date: 20251109
  Receipt Date: 20251109
  Transmission Date: 20260118
  Serious: Yes (Hospitalization, Other)
  Sender: JUBILANT
  Company Number: None

PATIENT
  Age: 71 Year
  Sex: Female

DRUGS (2)
  1. OLANZAPINE [Suspect]
     Active Substance: OLANZAPINE
     Indication: Dementia
     Dosage: 5 MG, ONCE PER DAY
  2. DIPHENHYDRAMINE [Suspect]
     Active Substance: DIPHENHYDRAMINE
     Indication: Dementia
     Dosage: 25 MG, TOTAL (ONE DOSE)
     Route: 042

REACTIONS (2)
  - Delirium [Unknown]
  - Extrapyramidal disorder [Recovered/Resolved]
